FAERS Safety Report 8373166-9 (Version None)
Quarter: 2012Q2

REPORT INFORMATION
  Report Type: 
  Country: None (occurrence: None)
  Receive Date: 20120521
  Receipt Date: 20120507
  Transmission Date: 20120825
  Serious: Yes (Life-Threatening, Hospitalization)
  Sender: FDA-Public Use
  Company Number: JP-PFIZER INC-2008081536

PATIENT
  Age: 87 Year
  Sex: Female
  Weight: 33 kg

DRUGS (13)
  1. SILDENAFIL CITRATE [Suspect]
     Indication: PULMONARY HYPERTENSION
     Route: 048
     Dates: start: 20080610
  2. LANSOPRAZOLE [Concomitant]
     Route: 048
     Dates: start: 20070330
  3. TORSEMIDE [Concomitant]
     Route: 048
     Dates: start: 20080906
  4. FLOLAN [Concomitant]
  5. AMOBAN [Concomitant]
     Route: 048
     Dates: start: 20070330
  6. BUP-4 [Concomitant]
     Route: 048
     Dates: start: 20061108
  7. ALDACTONE [Concomitant]
     Route: 048
     Dates: start: 20080908
  8. BERAPROST [Suspect]
     Dosage: 120 UG, 3X/DAY
     Route: 048
     Dates: start: 20080602
  9. TRACLEER [Suspect]
     Dosage: 62.5 MG, 2X/DAY
     Route: 048
     Dates: start: 20070726
  10. NORVASC [Concomitant]
     Route: 048
  11. GASMOTIN [Concomitant]
     Route: 048
     Dates: start: 20080905
  12. HALCION [Concomitant]
     Route: 048
     Dates: start: 20070425
  13. LASIX [Concomitant]
     Route: 048
     Dates: start: 20080901

REACTIONS (1)
  - HEPATIC FUNCTION ABNORMAL [None]
